FAERS Safety Report 24077980 (Version 1)
Quarter: 2024Q3

REPORT INFORMATION
  Report Type: Spontaneous
  Country: RO (occurrence: RO)
  Receive Date: 20240711
  Receipt Date: 20240711
  Transmission Date: 20241016
  Serious: Yes (Hospitalization, Other)
  Sender: ROCHE
  Company Number: RO-ROCHE-10000016679

PATIENT
  Age: 32 Year
  Sex: Male

DRUGS (13)
  1. RITUXIMAB [Suspect]
     Active Substance: RITUXIMAB
     Indication: Burkitt^s lymphoma
     Route: 065
     Dates: start: 202301, end: 202306
  2. RITUXIMAB [Suspect]
     Active Substance: RITUXIMAB
     Route: 065
     Dates: start: 202405
  3. CYCLOPHOSPHAMIDE [Concomitant]
     Active Substance: CYCLOPHOSPHAMIDE
     Dates: start: 202301, end: 202306
  4. VINCRISTINE [Concomitant]
     Active Substance: VINCRISTINE
     Dates: start: 202301, end: 202306
  5. DOXORUBICIN [Concomitant]
     Active Substance: DOXORUBICIN
     Dates: start: 202301, end: 202306
  6. METHOTREXATE [Concomitant]
     Active Substance: METHOTREXATE
  7. IFOSFAMIDE [Concomitant]
     Active Substance: IFOSFAMIDE
  8. CYTARABINE [Concomitant]
     Active Substance: CYTARABINE
     Dates: start: 202301, end: 202306
  9. ETOPOSIDE [Concomitant]
     Active Substance: ETOPOSIDE
  10. CYTARABINE [Concomitant]
     Active Substance: CYTARABINE
     Route: 029
     Dates: start: 202301, end: 202306
  11. GEMCITABINE [Concomitant]
     Active Substance: GEMCITABINE
     Dates: start: 20230930
  12. DEXAMETHASONE [Concomitant]
     Active Substance: DEXAMETHASONE
     Dates: start: 20230930
  13. CISPLATIN [Concomitant]
     Active Substance: CISPLATIN
     Dates: start: 20230930

REACTIONS (8)
  - Peripheral swelling [Unknown]
  - Neoplasm [Unknown]
  - Nodule [Unknown]
  - Burkitt^s lymphoma recurrent [Unknown]
  - Lymphoma [Unknown]
  - Fibrosis [Unknown]
  - Congenital aplasia [Unknown]
  - Neuropathy peripheral [Unknown]

NARRATIVE: CASE EVENT DATE: 20230905
